FAERS Safety Report 9368553 (Version 4)
Quarter: 2013Q4

REPORT INFORMATION
  Report Type: Spontaneous
  Country: US (occurrence: US)
  Receive Date: 20130626
  Receipt Date: 20131023
  Transmission Date: 20140711
  Serious: Yes (Death, Hospitalization, Other)
  Sender: FDA-Public Use
  Company Number: US-009507513-1306USA012237

PATIENT
  Sex: Male
  Weight: 113.38 kg

DRUGS (1)
  1. JANUVIA [Suspect]
     Indication: TYPE 2 DIABETES MELLITUS
     Dosage: 100 MG, QD
     Route: 048
     Dates: start: 20090319

REACTIONS (21)
  - Pancreatic carcinoma metastatic [Fatal]
  - Cardio-respiratory arrest [Fatal]
  - Prostate cancer [Unknown]
  - Radical prostatectomy [Unknown]
  - Depression [Unknown]
  - Anxiety [Unknown]
  - Nephrolithiasis [Unknown]
  - Muscle spasms [Unknown]
  - Back disorder [Unknown]
  - Spinal disorder [Unknown]
  - Muscle spasms [Unknown]
  - Diverticulitis [Unknown]
  - Diverticulum [Unknown]
  - Diverticulitis [Unknown]
  - Hypertension [Unknown]
  - Tendon operation [Unknown]
  - Tendon disorder [Unknown]
  - Renal cyst [Unknown]
  - Nephrolithiasis [Unknown]
  - Renal stone removal [Unknown]
  - Stent placement [Unknown]
